FAERS Safety Report 5531865-8 (Version None)
Quarter: 2007Q4

REPORT INFORMATION
  Report Type: 
  Country: None (occurrence: None)
  Receive Date: 20071203
  Receipt Date: 20071120
  Transmission Date: 20080405
  Serious: Yes (Other)
  Sender: FDA-Public Use
  Company Number: DE-ROCHE-532820

PATIENT
  Age: 46 Year
  Sex: Male
  Weight: 82 kg

DRUGS (9)
  1. VALGANCICLOVIR HCL [Suspect]
     Route: 048
     Dates: start: 20070920, end: 20071116
  2. PROGRAF [Suspect]
     Indication: DRUG USE FOR UNKNOWN INDICATION
     Route: 065
     Dates: start: 20070907
  3. COTRIM [Suspect]
     Indication: DRUG USE FOR UNKNOWN INDICATION
     Route: 065
     Dates: start: 20070920, end: 20071116
  4. CELLCEPT [Concomitant]
     Dates: start: 20070907
  5. BELOC-ZOK [Concomitant]
     Dates: start: 20070907
  6. RAMIPRIL [Concomitant]
     Dates: start: 20070920
  7. BICA NORM [Concomitant]
     Dates: start: 20070909
  8. LOCOL [Concomitant]
     Dosage: REPORTED AS LOCOL80
     Dates: start: 20070920
  9. NEORECORMON [Concomitant]
     Dosage: TDD REPORTED AS 10000
     Dates: start: 20070909, end: 20071025

REACTIONS (2)
  - THROMBOPHLEBITIS [None]
  - VENOUS THROMBOSIS LIMB [None]
